FAERS Safety Report 8787006 (Version 2)
Quarter: 2012Q4

REPORT INFORMATION
  Report Type: 
  Country: US (occurrence: US)
  Receive Date: 20120914
  Receipt Date: 20120924
  Transmission Date: 20130627
  Serious: Yes (Hospitalization)
  Sender: FDA-Public Use
  Company Number: US-VERTEX PHARMACEUTICAL INC.-AE-2012-009656

PATIENT
  Age: 69 Year
  Sex: Female
  Weight: 73 kg

DRUGS (9)
  1. VX-950 [Suspect]
     Indication: HEPATITIS C
     Dosage: 750 mg, tid
     Route: 048
  2. PEGASYS [Concomitant]
     Indication: HEPATITIS C
  3. RIBAVIRIN [Concomitant]
     Indication: HEPATITIS C
     Dosage: 200 mg, UNK
  4. FOSAMAX [Concomitant]
     Dosage: 35 mg, UNK
  5. MAGNESIUM [Concomitant]
     Dosage: 250 mg, UNK
  6. MULTIVITAMIN                       /00097801/ [Concomitant]
  7. CALCIUM + D DUETTO [Concomitant]
  8. FIBER LAX POW [Concomitant]
  9. LEVOTHYROXIN [Concomitant]

REACTIONS (6)
  - White blood cell count decreased [Unknown]
  - Mood swings [Unknown]
  - Constipation [Unknown]
  - Somnolence [Unknown]
  - Fatigue [Unknown]
  - Rash [Not Recovered/Not Resolved]
